FAERS Safety Report 7796075-2 (Version None)
Quarter: 2011Q4

REPORT INFORMATION
  Report Type: 
  Country: None (occurrence: None)
  Receive Date: 20111004
  Receipt Date: 20110928
  Transmission Date: 20120403
  Serious: Yes (Death, Hospitalization, Other)
  Sender: FDA-Public Use
  Company Number: JP-ELI_LILLY_AND_COMPANY-JP201108007105

PATIENT
  Sex: Male
  Weight: 57 kg

DRUGS (6)
  1. FOLIC ACID [Concomitant]
     Dosage: 0.5 MG, QD
     Route: 048
     Dates: start: 20110613, end: 20110812
  2. MASBLON H [Concomitant]
     Dosage: 1 MG, UNK
     Route: 030
     Dates: start: 20110613
  3. RABEPRAZOLE SODIUM [Concomitant]
     Indication: PROPHYLAXIS
     Dosage: 10 MG, QD
     Route: 048
     Dates: start: 20110708, end: 20110812
  4. ALIMTA [Suspect]
     Indication: LUNG ADENOCARCINOMA STAGE IV
     Dosage: 500 MG/M2, EVERY 4 WEEKS
     Route: 042
     Dates: start: 20110623, end: 20110720
  5. AMLODIPINE BESYLATE [Concomitant]
     Indication: HYPERTENSION
     Dosage: 2.5 MG, QD
     Route: 048
  6. URSO 250 [Concomitant]
     Indication: BILE DUCT STONE
     Dosage: 100 MG, TID
     Route: 048

REACTIONS (2)
  - PNEUMONITIS [None]
  - PERIPHERAL EMBOLISM [None]
